FAERS Safety Report 4309855-2 (Version None)
Quarter: 2004Q1

REPORT INFORMATION
  Report Type: 
  Country: None (occurrence: None)
  Receive Date: 20040227
  Receipt Date: 20031201
  Transmission Date: 20041129
  Serious: No
  Sender: FDA-Public Use
  Company Number: MPS1-10134

PATIENT
  Age: 14 Year
  Sex: Male
  Weight: 53.5244 kg

DRUGS (5)
  1. ALDURAZYME [Suspect]
     Indication: MUCOPOLYSACCHARIDOSIS I
     Dosage: 0.58 MG/KG Q2WKS IV
     Dates: start: 20031113
  2. BENADRYL [Concomitant]
  3. ACETAMINOPHEN [Concomitant]
  4. EMLA [Concomitant]
  5. IMITREX [Concomitant]

REACTIONS (2)
  - BLOOD PRESSURE FLUCTUATION [None]
  - HEADACHE [None]
